FAERS Safety Report 5159008-3 (Version None)
Quarter: 2006Q4

REPORT INFORMATION
  Report Type: 
  Country: None (occurrence: None)
  Receive Date: 20061117
  Receipt Date: 20061102
  Transmission Date: 20070319
  Serious: Yes (Death, Other)
  Sender: FDA-Public Use
  Company Number: 061103-0000952

PATIENT
  Age: 25 Year
  Sex: Female

DRUGS (1)
  1. METHAMPHETAMINE (METHAMPHETAMINE HYDROCHLORIDE) [Suspect]
     Indication: DRUG ABUSER

REACTIONS (9)
  - CAROTID ARTERY OCCLUSION [None]
  - CEREBRAL ISCHAEMIA [None]
  - DRUG ABUSER [None]
  - HYPERTHERMIA [None]
  - INTENTIONAL DRUG MISUSE [None]
  - LOSS OF CONSCIOUSNESS [None]
  - MUSCLE TWITCHING [None]
  - PUPILLARY LIGHT REFLEX TESTS ABNORMAL [None]
  - TACHYCARDIA [None]
